FAERS Safety Report 8991249 (Version 1)
Quarter: 2012Q4

REPORT INFORMATION
  Report Type: Report from Study
  Country: CA (occurrence: CA)
  Receive Date: 20121231
  Receipt Date: 20121231
  Transmission Date: 20130627
  Serious: Yes (Hospitalization, Other)
  Sender: FDA-Public Use
  Company Number: CA-ROCHE-1171836

PATIENT
  Age: 48 Year
  Sex: Male

DRUGS (1)
  1. OMALIZUMAB [Suspect]
     Indication: ASTHMA
     Dosage: 375 mg, Q2W
     Route: 058
     Dates: start: 20080725

REACTIONS (11)
  - Intestinal perforation [Unknown]
  - Abdominal wall abscess [Unknown]
  - Wheezing [Unknown]
  - Vomiting [Unknown]
  - Rales [Unknown]
  - Tremor [Unknown]
  - Malaise [Unknown]
  - Dyspnoea [Unknown]
  - Cough [Unknown]
  - Headache [Unknown]
  - Dyspnoea [Unknown]
